FAERS Safety Report 7410771-8 (Version None)
Quarter: 2011Q2

REPORT INFORMATION
  Report Type: 
  Country: None (occurrence: None)
  Receive Date: 20110405
  Receipt Date: 20110321
  Transmission Date: 20111010
  Serious: Yes (Hospitalization)
  Sender: FDA-Public Use
  Company Number: 2011MA002664

PATIENT
  Age: 29 Year
  Sex: Female

DRUGS (1)
  1. CARBAMAZEPINE [Suspect]
     Indication: MUSCLE SPASMS
     Dosage: 400 MG;OD
     Dates: start: 20030801

REACTIONS (7)
  - PRURITUS [None]
  - LYMPHOPENIA [None]
  - SKIN EXFOLIATION [None]
  - MYELITIS [None]
  - HYPOGAMMAGLOBULINAEMIA [None]
  - PNEUMONIA [None]
  - OPTIC NEURITIS [None]
